FAERS Safety Report 18314525 (Version 2)
Quarter: 2020Q4

REPORT INFORMATION
  Report Type: Not Available
  Country: US (occurrence: US)
  Receive Date: 20200925
  Receipt Date: 20201009
  Transmission Date: 20210113
  Serious: Yes (Hospitalization)
  Sender: FDA-Public Use
  Company Number: US-NEUROCRINE BIOSCIENCES INC.-2020NBI03440

PATIENT
  Age: 88 Year
  Sex: Female

DRUGS (6)
  1. INGREZZA [Suspect]
     Active Substance: VALBENAZINE
     Indication: TARDIVE DYSKINESIA
     Route: 048
     Dates: start: 20191227, end: 20200925
  2. REMERON [Concomitant]
     Active Substance: MIRTAZAPINE
     Dosage: AT NIGHT
  3. ERYTHROMYCIN. [Concomitant]
     Active Substance: ERYTHROMYCIN
     Dosage: OPHTHALMIC GEL
  4. ATIVAN [Concomitant]
     Active Substance: LORAZEPAM
  5. RISPERDAL [Concomitant]
     Active Substance: RISPERIDONE
  6. MORPHINE [Concomitant]
     Active Substance: MORPHINE

REACTIONS (1)
  - Cardiac failure [Not Recovered/Not Resolved]

NARRATIVE: CASE EVENT DATE: 20200901
